FAERS Safety Report 5484634-1 (Version None)
Quarter: 2007Q4

REPORT INFORMATION
  Report Type: 
  Country: None (occurrence: None)
  Receive Date: 20071010
  Receipt Date: 20071004
  Transmission Date: 20080405
  Serious: Yes (Hospitalization)
  Sender: FDA-Public Use
  Company Number: 2007BI014820

PATIENT
  Age: 64 Year
  Sex: Female
  Weight: 60 kg

DRUGS (10)
  1. AVONEX [Suspect]
     Indication: MULTIPLE SCLEROSIS
     Dosage: 30 UG; QW; IM
     Route: 030
     Dates: start: 20040901
  2. LYRICA [Concomitant]
  3. OXYCODON [Concomitant]
  4. AMITRYPTILIN [Concomitant]
  5. NEXIUM [Concomitant]
  6. LEVOPAR [Concomitant]
  7. NIFURANTIN [Concomitant]
  8. AMBROXOL [Concomitant]
  9. DREISAVIT [Concomitant]
  10. CEFUROXIME [Concomitant]

REACTIONS (14)
  - ASPARTATE AMINOTRANSFERASE INCREASED [None]
  - ASTHENIA [None]
  - BALANCE DISORDER [None]
  - BLINDNESS [None]
  - COUGH [None]
  - GENERAL PHYSICAL HEALTH DETERIORATION [None]
  - IRON DEFICIENCY ANAEMIA [None]
  - LOBAR PNEUMONIA [None]
  - MENOPAUSAL DISORDER [None]
  - MULTIPLE SCLEROSIS RELAPSE [None]
  - MUSCULAR WEAKNESS [None]
  - PYELONEPHRITIS [None]
  - STAPHYLOCOCCAL INFECTION [None]
  - URINARY TRACT INFECTION [None]
